FAERS Safety Report 16457955 (Version 2)
Quarter: 2019Q3

REPORT INFORMATION
  Report Type: Spontaneous
  Country: JP (occurrence: JP)
  Receive Date: 20190620
  Receipt Date: 20190702
  Transmission Date: 20191004
  Serious: Yes (Death, Other)
  Sender: FDA-Public Use
  Company Number: JP-PFIZER INC-2019252603

PATIENT
  Age: 69 Year
  Sex: Male

DRUGS (1)
  1. LORLATINIB [Suspect]
     Active Substance: LORLATINIB
     Indication: LUNG ADENOCARCINOMA STAGE IV
     Dosage: UNK

REACTIONS (4)
  - Delirium [Unknown]
  - Death [Fatal]
  - Suicidal ideation [Recovering/Resolving]
  - Hallucination [Unknown]
